FAERS Safety Report 18605400 (Version 1)
Quarter: 2020Q4

REPORT INFORMATION
  Report Type: Spontaneous
  Country: US (occurrence: US)
  Receive Date: 20201211
  Receipt Date: 20201211
  Transmission Date: 20210114
  Serious: No
  Sender: FDA-Public Use
  Company Number: US-BIOGEN-2020BI00879670

PATIENT
  Age: 57 Year
  Sex: Female

DRUGS (7)
  1. AMLODIPINE BESYLATE. [Concomitant]
     Active Substance: AMLODIPINE BESYLATE
     Route: 065
  2. GABAPENTIN. [Concomitant]
     Active Substance: GABAPENTIN
     Route: 065
  3. MELATONIN [Concomitant]
     Active Substance: MELATONIN
     Route: 065
  4. PRAVASTATIN SODIUM. [Concomitant]
     Active Substance: PRAVASTATIN SODIUM
     Route: 065
  5. DIAZEPAM. [Concomitant]
     Active Substance: DIAZEPAM
     Route: 065
  6. TECFIDERA [Suspect]
     Active Substance: DIMETHYL FUMARATE
     Indication: MULTIPLE SCLEROSIS
     Route: 048
     Dates: start: 20180525
  7. VALIUM [Concomitant]
     Active Substance: DIAZEPAM
     Route: 065

REACTIONS (15)
  - Gastrointestinal disorder [Unknown]
  - Anxiety [Unknown]
  - Insomnia [Unknown]
  - Neuropathy peripheral [Unknown]
  - Stress [Unknown]
  - Constipation [Not Recovered/Not Resolved]
  - Visual impairment [Unknown]
  - Middle insomnia [Unknown]
  - Mobility decreased [Unknown]
  - Abdominal pain upper [Unknown]
  - Sensory disturbance [Recovered/Resolved]
  - Flushing [Unknown]
  - Back pain [Not Recovered/Not Resolved]
  - Nervousness [Unknown]
  - Fall [Recovered/Resolved]

NARRATIVE: CASE EVENT DATE: 20201015
